FAERS Safety Report 6110562-4 (Version None)
Quarter: 2009Q1

REPORT INFORMATION
  Report Type: 
  Country: None (occurrence: None)
  Receive Date: 20090310
  Receipt Date: 20090302
  Transmission Date: 20090719
  Serious: Yes (Hospitalization, Other)
  Sender: FDA-Public Use
  Company Number: PHHY2009DE03370

PATIENT
  Age: 65 Year
  Sex: Male

DRUGS (13)
  1. COMTESS [Suspect]
     Indication: PARKINSON'S DISEASE
     Dosage: UNK
     Route: 048
     Dates: start: 20081109
  2. STALEVO 100 [Suspect]
     Dosage: 4 X 1 (200/100/25MG)
     Dates: end: 20090121
  3. STALEVO 100 [Suspect]
     Dosage: 2 X 1 (200/100/25MG) MORNING
     Dates: start: 20090122
  4. OMEPRAZOLE [Suspect]
     Dosage: UNK
     Dates: end: 20090116
  5. ALLOPURINOL [Suspect]
     Dosage: 300 MG, UNK
     Dates: end: 20090116
  6. XIPAMIDE [Concomitant]
  7. MADOPAR [Concomitant]
     Dosage: 2 X 125 MG, AFTERNOON
  8. MADOPAR [Concomitant]
     Dosage: 4 X 125 MG
     Dates: start: 20090123
  9. MADOPAR DEPOT [Concomitant]
     Dosage: UNK
  10. SIFROL [Concomitant]
  11. TOLTERODINE TARTRATE [Concomitant]
  12. VOLTAREN [Concomitant]
  13. MAGNESIUM DIASPORAL [Concomitant]
     Dosage: 300 MG, UNK

REACTIONS (3)
  - ASTHENIA [None]
  - DIARRHOEA [None]
  - SURGERY [None]
